FAERS Safety Report 6975632-7 (Version None)
Quarter: 2010Q3

REPORT INFORMATION
  Report Type: 
  Country: None (occurrence: None)
  Receive Date: 20100910
  Receipt Date: 20100902
  Transmission Date: 20110219
  Serious: Yes (Hospitalization)
  Sender: FDA-Public Use
  Company Number: US-JNJFOC-20100901484

PATIENT
  Sex: Female
  Weight: 83.92 kg

DRUGS (6)
  1. FENTANYL CITRATE [Suspect]
     Indication: PAIN
     Route: 062
  2. LEXAPRO [Concomitant]
     Indication: DEPRESSION
     Route: 048
  3. NADOLOL [Concomitant]
     Indication: MIGRAINE
     Route: 048
  4. MIGRANAL [Concomitant]
     Indication: MIGRAINE
     Route: 045
  5. ACIPHEX [Concomitant]
     Indication: DYSPEPSIA
     Route: 048
  6. GLYBURIDE [Concomitant]
     Indication: DIABETES MELLITUS
     Route: 048

REACTIONS (6)
  - ABDOMINAL PAIN UPPER [None]
  - APPLICATION SITE PRURITUS [None]
  - CATARACT [None]
  - DIABETES MELLITUS [None]
  - OEDEMA PERIPHERAL [None]
  - VISION BLURRED [None]
